FAERS Safety Report 22238628 (Version 2)
Quarter: 2023Q2

REPORT INFORMATION
  Report Type: Spontaneous
  Country: ID (occurrence: ID)
  Receive Date: 20230421
  Receipt Date: 20230502
  Transmission Date: 20230721
  Serious: Yes (Hospitalization, Other)
  Sender: FDA-Public Use
  Company Number: ID-Accord-309051

PATIENT
  Age: 49 Year
  Sex: Male

DRUGS (12)
  1. FLUOROURACIL [Suspect]
     Active Substance: FLUOROURACIL
     Indication: Adenocarcinoma of colon
     Dosage: 2400 MG/M2 FOR 46 HOURS (SEVENTH CYCLE), (TOTAL CYCLES: 9)
  2. IRINOTECAN [Suspect]
     Active Substance: IRINOTECAN
     Indication: Adenocarcinoma of colon
     Dosage: EVERY 3 WEEKS (TOTAL CYCLES: 9)
  3. LEUCOVORIN CALCIUM [Suspect]
     Active Substance: LEUCOVORIN CALCIUM
     Indication: Adenocarcinoma of colon
     Dosage: (TOTAL CYCLES: 9)
  4. FLUOROURACIL [Suspect]
     Active Substance: FLUOROURACIL
     Indication: Metastases to liver
     Dosage: 2400 MG/M2 FOR 46 HOURS (SEVENTH CYCLE), (TOTAL CYCLES: 9)
  5. FLUOROURACIL [Suspect]
     Active Substance: FLUOROURACIL
     Indication: Rectal cancer
     Dosage: 2400 MG/M2 FOR 46 HOURS (SEVENTH CYCLE), (TOTAL CYCLES: 9)
  6. FLUOROURACIL [Suspect]
     Active Substance: FLUOROURACIL
     Indication: Colon cancer stage IV
     Dosage: 2400 MG/M2 FOR 46 HOURS (SEVENTH CYCLE), (TOTAL CYCLES: 9)
  7. IRINOTECAN [Suspect]
     Active Substance: IRINOTECAN
     Indication: Metastases to liver
     Dosage: EVERY 3 WEEKS (TOTAL CYCLES: 9)
  8. IRINOTECAN [Suspect]
     Active Substance: IRINOTECAN
     Indication: Rectal cancer
     Dosage: EVERY 3 WEEKS (TOTAL CYCLES: 9)
  9. IRINOTECAN [Suspect]
     Active Substance: IRINOTECAN
     Indication: Colon cancer stage IV
     Dosage: EVERY 3 WEEKS (TOTAL CYCLES: 9)
  10. LEUCOVORIN CALCIUM [Suspect]
     Active Substance: LEUCOVORIN CALCIUM
     Indication: Metastases to liver
     Dosage: (TOTAL CYCLES: 9)
  11. LEUCOVORIN CALCIUM [Suspect]
     Active Substance: LEUCOVORIN CALCIUM
     Indication: Rectal cancer
     Dosage: (TOTAL CYCLES: 9)
  12. LEUCOVORIN CALCIUM [Suspect]
     Active Substance: LEUCOVORIN CALCIUM
     Indication: Colon cancer stage IV
     Dosage: (TOTAL CYCLES: 9)

REACTIONS (5)
  - Toxic encephalopathy [Recovered/Resolved]
  - Ischaemic stroke [Unknown]
  - Nausea [Unknown]
  - Loss of consciousness [Unknown]
  - Hemiparesis [Unknown]
